FAERS Safety Report 9872486 (Version 1)
Quarter: 2014Q1

REPORT INFORMATION
  Report Type: Other
  Country: US (occurrence: US)
  Receive Date: 20140206
  Receipt Date: 20140206
  Transmission Date: 20141002
  Serious: Yes (Other)
  Sender: FDA-Public Use
  Company Number: US-ACORDA-ACO_100014_2013

PATIENT
  Age: 34 Year
  Sex: Female

DRUGS (2)
  1. AMPYRA [Suspect]
     Indication: MULTIPLE SCLEROSIS
     Dosage: 10 MG, BID
     Route: 048
     Dates: start: 20120724
  2. AMPYRA [Suspect]
     Indication: GAIT DISTURBANCE

REACTIONS (3)
  - Clavicle fracture [Unknown]
  - Fall [Unknown]
  - Monoplegia [Unknown]
